FAERS Safety Report 23084971 (Version 4)
Quarter: 2025Q2

REPORT INFORMATION
  Report Type: Spontaneous
  Country: CH (occurrence: CH)
  Receive Date: 20231019
  Receipt Date: 20250429
  Transmission Date: 20250716
  Serious: Yes (Death, Hospitalization, Other)
  Sender: SANDOZ
  Company Number: CH-002147023-NVSC2022CH182732

PATIENT
  Age: 89 Year
  Sex: Female

DRUGS (8)
  1. FULVESTRANT [Suspect]
     Active Substance: FULVESTRANT
     Indication: Product used for unknown indication
     Route: 065
     Dates: start: 20220704, end: 20240620
  2. FASLODEX [Suspect]
     Active Substance: FULVESTRANT
     Indication: Product used for unknown indication
     Route: 065
     Dates: start: 20220810
  3. FASLODEX [Suspect]
     Active Substance: FULVESTRANT
     Route: 065
     Dates: start: 20220810, end: 20230801
  4. FASLODEX [Suspect]
     Active Substance: FULVESTRANT
     Indication: Breast cancer
     Route: 042
     Dates: start: 20220704, end: 20230801
  5. RIBOCICLIB [Suspect]
     Active Substance: RIBOCICLIB
     Route: 048
  6. RIBOCICLIB [Suspect]
     Active Substance: RIBOCICLIB
     Indication: Breast cancer
     Route: 048
     Dates: start: 20220704, end: 20220801
  7. RIBOCICLIB [Suspect]
     Active Substance: RIBOCICLIB
     Route: 048
     Dates: start: 20220811
  8. RIBOCICLIB [Suspect]
     Active Substance: RIBOCICLIB
     Route: 048
     Dates: start: 20220704, end: 20220710

REACTIONS (16)
  - Death [Fatal]
  - Delirium [Recovered/Resolved]
  - Neutrophil count decreased [Recovered/Resolved]
  - Delirium [Recovered/Resolved]
  - Memory impairment [Recovered/Resolved]
  - Skin exfoliation [Unknown]
  - Haematoma [Unknown]
  - Dyspnoea exertional [Not Recovered/Not Resolved]
  - Fall [Recovering/Resolving]
  - Dry skin [Unknown]
  - White blood cell count decreased [Recovered/Resolved]
  - Anaemia [Recovered/Resolved]
  - Anaemia [Recovered/Resolved]
  - Rash [Recovered/Resolved]
  - Fatigue [Recovered/Resolved]
  - Dizziness [Recovered/Resolved]

NARRATIVE: CASE EVENT DATE: 20220802
